FAERS Safety Report 4663514-5 (Version None)
Quarter: 2005Q2

REPORT INFORMATION
  Report Type: 
  Country: None (occurrence: None)
  Receive Date: 20050517
  Receipt Date: 19970902
  Transmission Date: 20051028
  Serious: Yes (Hospitalization)
  Sender: FDA-Public Use
  Company Number: FR-GLAXOSMITHKLINE-B0049423A

PATIENT
  Age: 82 Year
  Sex: Female

DRUGS (2)
  1. ALLOPURINOL [Suspect]
     Indication: GOUT
     Dosage: 100MG PER DAY
     Dates: start: 19950615, end: 19970506
  2. PAROXETINE [Suspect]
     Dosage: 20MG PER DAY
     Route: 048
     Dates: start: 19961229, end: 19970411

REACTIONS (7)
  - ARTHRALGIA [None]
  - COLITIS [None]
  - DIARRHOEA [None]
  - DIVERTICULITIS [None]
  - GENERAL PHYSICAL HEALTH DETERIORATION [None]
  - INFLAMMATORY BOWEL DISEASE [None]
  - PYREXIA [None]
